FAERS Safety Report 9302021 (Version 1)
Quarter: 2013Q2

REPORT INFORMATION
  Report Type: Spontaneous
  Country: US (occurrence: US)
  Receive Date: 20130521
  Receipt Date: 20130521
  Transmission Date: 20140414
  Serious: Yes (Other)
  Sender: FDA-Public Use
  Company Number: CHPA2013US006691

PATIENT
  Age: 79 Year
  Sex: Male

DRUGS (4)
  1. BENEFIBER STICK PACKS [Suspect]
     Indication: BOWEL MOVEMENT IRREGULARITY
     Dosage: 1-2 DF, UNK
     Route: 048
  2. BENEFIBER STICK PACKS [Suspect]
     Indication: NUTRITIONAL SUPPLEMENTATION
  3. TRAMADOL [Concomitant]
     Dosage: UNK, UNK
     Dates: start: 201212
  4. ASPIRIN [Concomitant]
     Dosage: UNK, UNK
     Dates: start: 201212

REACTIONS (5)
  - Intervertebral disc disorder [Not Recovered/Not Resolved]
  - Back pain [Recovering/Resolving]
  - Off label use [Unknown]
  - Therapeutic response unexpected [Unknown]
  - Expired drug administered [Unknown]
